FAERS Safety Report 5082426-9 (Version None)
Quarter: 2006Q3

REPORT INFORMATION
  Report Type: 
  Country: None (occurrence: None)
  Receive Date: 20060817
  Receipt Date: 20060810
  Transmission Date: 20061208
  Serious: Yes (Life-Threatening, Hospitalization, Other)
  Sender: FDA-Public Use
  Company Number: GB-GLAXOSMITHKLINE-B0434289A

PATIENT
  Age: 79 Year
  Sex: Male
  Weight: 100 kg

DRUGS (5)
  1. AVANDIA [Suspect]
     Route: 048
     Dates: start: 20051201, end: 20060711
  2. AMLODIPINE [Concomitant]
     Route: 048
  3. DOXAZOSIN [Concomitant]
     Route: 048
  4. NEBIVOLOL HCL [Concomitant]
     Route: 048
  5. PERINDOPRIL ERUMINE [Concomitant]
     Route: 048

REACTIONS (1)
  - ACUTE PULMONARY OEDEMA [None]
